FAERS Safety Report 23203375 (Version 2)
Quarter: 2023Q4

REPORT INFORMATION
  Report Type: Spontaneous
  Country: GB (occurrence: GB)
  Receive Date: 20231120
  Receipt Date: 20231218
  Transmission Date: 20240110
  Serious: Yes (Disabling, Congenital Anomaly, Other)
  Sender: FDA-Public Use
  Company Number: GB-MHRA-MED-202311091907196990-VZWNJ

PATIENT
  Sex: Female

DRUGS (3)
  1. SERTRALINE [Suspect]
     Active Substance: SERTRALINE HYDROCHLORIDE
     Indication: Anxiety
     Dosage: UNK
     Route: 064
  2. CYCLIZINE [Concomitant]
     Active Substance: CYCLIZINE
     Indication: Adverse drug reaction
     Dosage: UNK
     Route: 064
  3. CYCLIZINE [Concomitant]
     Active Substance: CYCLIZINE
     Indication: Vomiting

REACTIONS (2)
  - Heart disease congenital [Not Recovered/Not Resolved]
  - Foetal exposure during pregnancy [Unknown]
